FAERS Safety Report 5542682-7 (Version None)
Quarter: 2007Q4

REPORT INFORMATION
  Report Type: 
  Country: None (occurrence: None)
  Receive Date: 20071123
  Receipt Date: 20070625
  Transmission Date: 20080405
  Serious: Yes (Other)
  Sender: FDA-Public Use
  Company Number: US-JNJFOC-20070606423

PATIENT
  Age: 30 Year
  Sex: Female

DRUGS (1)
  1. LEVAQUIN [Suspect]
     Indication: DRUG USE FOR UNKNOWN INDICATION
     Dosage: 750 MG, ORAL
     Route: 048
     Dates: start: 20070601, end: 20070601

REACTIONS (2)
  - ARRHYTHMIA [None]
  - PALPITATIONS [None]
